FAERS Safety Report 19190122 (Version 3)
Quarter: 2021Q3

REPORT INFORMATION
  Report Type: Spontaneous
  Country: CA (occurrence: CA)
  Receive Date: 20210428
  Receipt Date: 20210722
  Transmission Date: 20211014
  Serious: Yes (Other)
  Sender: FDA-Public Use
  Company Number: CA-PFIZER INC-2020507707

PATIENT
  Age: 36 Year
  Sex: Female
  Weight: 81 kg

DRUGS (6)
  1. XELJANZ [Suspect]
     Active Substance: TOFACITINIB CITRATE
     Dosage: 5 MG, 2X/DAY
     Route: 048
     Dates: start: 202104
  2. METHOTREXATE. [Concomitant]
     Active Substance: METHOTREXATE
     Dosage: 1 DF, WEEKLY
     Dates: start: 202104
  3. XELJANZ [Suspect]
     Active Substance: TOFACITINIB CITRATE
     Indication: PSORIATIC ARTHROPATHY
     Dosage: 5 MG, 2X/DAY
     Route: 048
     Dates: start: 20210115, end: 202103
  4. DUPIXENT [Concomitant]
     Active Substance: DUPILUMAB
     Indication: DERMATITIS
     Dosage: UNK
  5. CELEBREX [Concomitant]
     Active Substance: CELECOXIB
     Dosage: 1 DF
     Dates: start: 2021
  6. METHOTREXATE. [Concomitant]
     Active Substance: METHOTREXATE
     Dosage: 1 DF, WEEKLY
     Dates: end: 202103

REACTIONS (5)
  - COVID-19 [Unknown]
  - Therapeutic product effect decreased [Unknown]
  - Oedema genital [Recovering/Resolving]
  - Immunosuppression [Unknown]
  - Infection [Unknown]

NARRATIVE: CASE EVENT DATE: 202103
